FAERS Safety Report 4866414-0 (Version None)
Quarter: 2005Q4

REPORT INFORMATION
  Report Type: 
  Country: None (occurrence: None)
  Receive Date: 20051227
  Receipt Date: 20051005
  Transmission Date: 20060501
  Serious: Yes (Death, Hospitalization)
  Sender: FDA-Public Use
  Company Number: US-MERCK-0510USA04809

PATIENT
  Age: 79 Year
  Sex: Female
  Weight: 77 kg

DRUGS (6)
  1. VIOXX [Suspect]
     Indication: PAIN
     Route: 048
     Dates: start: 20010101, end: 20040301
  2. NORVASC [Concomitant]
     Route: 065
  3. L-THYROXIN [Concomitant]
     Route: 065
  4. SENOKOT [Concomitant]
     Route: 065
  5. TRIAMTERENE [Concomitant]
     Route: 065
  6. ASPIRIN [Concomitant]
     Route: 065

REACTIONS (6)
  - CARDIOVASCULAR DISORDER [None]
  - CONCUSSION [None]
  - DEATH [None]
  - FALL [None]
  - FEMUR FRACTURE [None]
  - ISCHAEMIC STROKE [None]
